FAERS Safety Report 6156151-7 (Version None)
Quarter: 2009Q2

REPORT INFORMATION
  Report Type: 
  Country: None (occurrence: None)
  Receive Date: 20090413
  Receipt Date: 20090413
  Transmission Date: 20091009
  Serious: Yes (Other)
  Sender: FDA-Public Use
  Company Number: None

PATIENT
  Age: 40 Year
  Sex: Male
  Weight: 86.1834 kg

DRUGS (1)
  1. FLEXERIL [Suspect]
     Indication: JOINT SPRAIN
     Dosage: PO
     Route: 048
     Dates: start: 20090407, end: 20090412

REACTIONS (6)
  - ABNORMAL BEHAVIOUR [None]
  - AFFECTIVE DISORDER [None]
  - ALCOHOL USE [None]
  - ANGER [None]
  - SCREAMING [None]
  - THINKING ABNORMAL [None]
